FAERS Safety Report 13617043 (Version 1)
Quarter: 2017Q2

REPORT INFORMATION
  Report Type: Spontaneous
  Country: US (occurrence: US)
  Receive Date: 20170606
  Receipt Date: 20170606
  Transmission Date: 20170830
  Serious: No
  Sender: FDA-Public Use
  Company Number: US-SA-2016SA151728

PATIENT
  Age: 77 Year
  Sex: Male

DRUGS (3)
  1. SOLOSTAR [Concomitant]
     Active Substance: DEVICE
  2. LANTUS SOLOSTAR [Suspect]
     Active Substance: INSULIN GLARGINE
     Indication: TYPE 2 DIABETES MELLITUS
     Dosage: 15 UNITS IN THE MORNING, 27 MG IN THE AFTERNOON + 22 MG IN THE EVENING
     Route: 065
     Dates: start: 201605
  3. LANTUS SOLOSTAR [Suspect]
     Active Substance: INSULIN GLARGINE
     Indication: TYPE 2 DIABETES MELLITUS
     Dosage: 15 UNITS IN THE MORNING, 27 MG IN THE AFTERNOON + 22 MG IN THE EVENING
     Route: 065
     Dates: start: 201605

REACTIONS (3)
  - Hypersomnia [Unknown]
  - Product use issue [Unknown]
  - Malaise [Unknown]
